FAERS Safety Report 4638821-2 (Version None)
Quarter: 2005Q2

REPORT INFORMATION
  Report Type: 
  Country: None (occurrence: None)
  Receive Date: 20050328
  Receipt Date: 20050211
  Transmission Date: 20051028
  Serious: No
  Sender: FDA-Public Use
  Company Number: US_0409106195

PATIENT
  Age: 7 Year
  Sex: Male
  Weight: 32 kg

DRUGS (1)
  1. STRATTERA [Suspect]
     Indication: ATTENTION DEFICIT/HYPERACTIVITY DISORDER
     Dosage: 28 MG DAY
     Dates: start: 20040801

REACTIONS (8)
  - CRYING [None]
  - EMOTIONAL DISTRESS [None]
  - FEELING ABNORMAL [None]
  - IMPULSIVE BEHAVIOUR [None]
  - MOOD SWINGS [None]
  - PSYCHOMOTOR HYPERACTIVITY [None]
  - THERAPEUTIC RESPONSE DECREASED [None]
  - WEIGHT INCREASED [None]
